FAERS Safety Report 5404439-7 (Version None)
Quarter: 2007Q3

REPORT INFORMATION
  Report Type: 
  Country: None (occurrence: None)
  Receive Date: 20070711
  Receipt Date: 20070620
  Transmission Date: 20080115
  Serious: Yes (Hospitalization, Disabling)
  Sender: FDA-Public Use
  Company Number: 2007-0001

PATIENT
  Age: 59 Year
  Sex: Female

DRUGS (1)
  1. CITALOPRAM HYDROBROMIDE [Suspect]
     Indication: DEPRESSION
     Dosage: 14 TABS ORALLY AT ONCE
     Route: 048

REACTIONS (1)
  - ANGLE CLOSURE GLAUCOMA [None]
